FAERS Safety Report 23663825 (Version 2)
Quarter: 2024Q2

REPORT INFORMATION
  Report Type: Spontaneous
  Country: US (occurrence: US)
  Receive Date: 20240322
  Receipt Date: 20240412
  Transmission Date: 20240716
  Serious: Yes (Life-Threatening, Hospitalization)
  Sender: FDA-Public Use
  Company Number: US-TEVA-VS-3173506

PATIENT
  Age: 31 Year
  Sex: Male

DRUGS (2)
  1. PROPOFOL [Suspect]
     Active Substance: PROPOFOL
     Indication: Agitation
     Route: 065
  2. FENTANYL [Suspect]
     Active Substance: FENTANYL\FENTANYL CITRATE
     Indication: Agitation
     Dosage: INJECTED 1:1 MIXTURES OF XYLAZINE AND FENTANYL INTRAVENOUSLY REGULARLY
     Route: 042

REACTIONS (5)
  - Carbon monoxide poisoning [Recovering/Resolving]
  - Drug abuse [Recovering/Resolving]
  - Drug ineffective [Unknown]
  - Overdose [Recovering/Resolving]
  - Respiratory failure [Recovered/Resolved]
